FAERS Safety Report 5632419-5 (Version None)
Quarter: 2008Q1

REPORT INFORMATION
  Report Type: 
  Country: None (occurrence: None)
  Receive Date: 20080220
  Receipt Date: 20070205
  Transmission Date: 20080703
  Serious: No
  Sender: FDA-Public Use
  Company Number: US-ASTRAZENECA-2007UW02286

PATIENT
  Sex: Male

DRUGS (2)
  1. PLENDIL [Suspect]
     Route: 048
  2. BISOPROLOL FUMARATE [Concomitant]

REACTIONS (1)
  - ERECTILE DYSFUNCTION [None]
